FAERS Safety Report 16766842 (Version 1)
Quarter: 2019Q4

REPORT INFORMATION
  Report Type: Spontaneous
  Country: US (occurrence: US)
  Receive Date: 20190901
  Receipt Date: 20190901
  Transmission Date: 20200122
  Serious: Yes (Other)
  Sender: FDA-Public Use
  Company Number: None

PATIENT
  Age: 41 Year
  Sex: Female
  Weight: 45 kg

DRUGS (1)
  1. LUPRON [Suspect]
     Active Substance: LEUPROLIDE ACETATE
     Indication: ENDOMETRIOSIS
     Route: 058
     Dates: start: 20180604, end: 20180730

REACTIONS (7)
  - Peripheral coldness [None]
  - Cerebrovascular accident [None]
  - Feeling hot [None]
  - Burning sensation [None]
  - Feeling cold [None]
  - Sensory disturbance [None]
  - Muscular weakness [None]

NARRATIVE: CASE EVENT DATE: 20180809
